FAERS Safety Report 22239428 (Version 1)
Quarter: 2023Q2

REPORT INFORMATION
  Report Type: Report from Study
  Country: IN (occurrence: IN)
  Receive Date: 20230421
  Receipt Date: 20230421
  Transmission Date: 20230721
  Serious: Yes (Other)
  Sender: FDA-Public Use
  Company Number: IN-MYLANLABS-2023M1042423

PATIENT
  Age: 41 Year
  Sex: Male

DRUGS (3)
  1. DOCETAXEL [Suspect]
     Active Substance: DOCETAXEL
     Indication: Squamous cell carcinoma of the tongue
     Dosage: 75 MILLIGRAM/SQ. METER, Q3W, ON DAY 1. RECEIVED 1 CYCLE OF THERAPY
     Route: 065
  2. CISPLATIN [Suspect]
     Active Substance: CISPLATIN
     Indication: Squamous cell carcinoma of the tongue
     Dosage: 75 MILLIGRAM/SQ. METER, Q3W,ON DAY 1. RECEIVED 1 CYCLE OF THERAPY
     Route: 065
  3. FLUOROURACIL [Suspect]
     Active Substance: FLUOROURACIL
     Indication: Squamous cell carcinoma of the tongue
     Dosage: 750 MILLIGRAM/SQ. METER, Q3W,ON DAY 1-5. RECEIVED 1 CYCLE OF THERAPY
     Route: 065

REACTIONS (2)
  - Therapy non-responder [Unknown]
  - Disease progression [Unknown]
